FAERS Safety Report 17138537 (Version 4)
Quarter: 2020Q1

REPORT INFORMATION
  Report Type: Spontaneous
  Country: US (occurrence: US)
  Receive Date: 20191211
  Receipt Date: 20200326
  Transmission Date: 20200409
  Serious: No
  Sender: FDA-Public Use
  Company Number: US-TEVA-2019-US-1150646

PATIENT
  Sex: Female

DRUGS (4)
  1. EXCEDRIN EXTRA STRENGTH [Concomitant]
     Active Substance: ACETAMINOPHEN\ASPIRIN\CAFFEINE
  2. XANAX [Concomitant]
     Active Substance: ALPRAZOLAM
  3. AMITRIPTYLINE [Concomitant]
     Active Substance: AMITRIPTYLINE
  4. SYNRIBO [Suspect]
     Active Substance: OMACETAXINE MEPESUCCINATE
     Indication: CHRONIC MYELOID LEUKAEMIA
     Dosage: DOSAGE 2.3 MG/0.66ML: BID *07 DAYS
     Route: 065
     Dates: start: 20191203

REACTIONS (13)
  - Dizziness [Unknown]
  - Asthenia [Unknown]
  - Injection site urticaria [Unknown]
  - Dry mouth [Unknown]
  - Headache [Unknown]
  - Fatigue [Unknown]
  - Palpitations [Unknown]
  - Formication [Unknown]
  - Injection site joint pain [Unknown]
  - Somnolence [Unknown]
  - Injection site pain [Unknown]
  - Injection site erythema [Unknown]
  - Platelet count decreased [Unknown]
